FAERS Safety Report 16244541 (Version 2)
Quarter: 2019Q2

REPORT INFORMATION
  Report Type: Spontaneous
  Country: KR (occurrence: KR)
  Receive Date: 20190426
  Receipt Date: 20190514
  Transmission Date: 20190711
  Serious: Yes (Other)
  Sender: FDA-Public Use
  Company Number: KR-JNJFOC-20190433283

PATIENT
  Age: 17 Year
  Sex: Female
  Weight: 48 kg

DRUGS (2)
  1. REMICADE [Suspect]
     Active Substance: INFLIXIMAB
     Indication: CROHN^S DISEASE
     Route: 042
  2. REMSIMA [Suspect]
     Active Substance: INFLIXIMAB
     Indication: CROHN^S DISEASE
     Route: 065

REACTIONS (5)
  - Off label use [Unknown]
  - Drug specific antibody present [Unknown]
  - Product use issue [Unknown]
  - Drug level decreased [Recovered/Resolved]
  - Crohn^s disease [Recovered/Resolved]
